FAERS Safety Report 7090601-7 (Version None)
Quarter: 2010Q4

REPORT INFORMATION
  Report Type: 
  Country: None (occurrence: None)
  Receive Date: 20101109
  Receipt Date: 20080911
  Transmission Date: 20110411
  Serious: No
  Sender: FDA-Public Use
  Company Number: US-KINGPHARMUSA00001-K200801073

PATIENT

DRUGS (1)
  1. EPIPEN [Suspect]

REACTIONS (1)
  - ACCIDENTAL EXPOSURE [None]
